FAERS Safety Report 9205485 (Version 9)
Quarter: 2015Q4

REPORT INFORMATION
  Report Type: Spontaneous
  Country: BR (occurrence: BR)
  Receive Date: 20130403
  Receipt Date: 20151002
  Transmission Date: 20160305
  Serious: Yes (Hospitalization, Other)
  Sender: FDA-Public Use
  Company Number: BR-BIOGENIDEC-2013BI030031

PATIENT
  Age: 51 Year
  Sex: Female
  Weight: 80 kg

DRUGS (3)
  1. IVIG [Concomitant]
     Active Substance: HUMAN IMMUNOGLOBULIN G
     Route: 042
  2. TYSABRI [Suspect]
     Active Substance: NATALIZUMAB
     Indication: MULTIPLE SCLEROSIS
     Route: 042
     Dates: start: 2009, end: 201303
  3. SOLU-MEDROL [Concomitant]
     Active Substance: METHYLPREDNISOLONE SODIUM SUCCINATE

REACTIONS (2)
  - Immune reconstitution inflammatory syndrome [Recovered/Resolved]
  - Progressive multifocal leukoencephalopathy [Recovered/Resolved]

NARRATIVE: CASE EVENT DATE: 20130318
